FAERS Safety Report 8061359-X (Version None)
Quarter: 2012Q1

REPORT INFORMATION
  Report Type: 
  Country: None (occurrence: None)
  Receive Date: 20120120
  Receipt Date: 20110929
  Transmission Date: 20120608
  Serious: No
  Sender: FDA-Public Use
  Company Number: US-ALLERGAN-1112948US

PATIENT
  Age: 50 Year
  Sex: Female

DRUGS (1)
  1. RESTASIS [Suspect]
     Indication: DRY EYE
     Dosage: 2 GTT, BID
     Route: 047
     Dates: start: 20091001, end: 20101001

REACTIONS (8)
  - SWELLING FACE [None]
  - SCLERAL HYPERAEMIA [None]
  - EYELID OEDEMA [None]
  - MIGRAINE [None]
  - DARK CIRCLES UNDER EYES [None]
  - EYE DISCHARGE [None]
  - PHOTOPHOBIA [None]
  - EYE IRRITATION [None]
